FAERS Safety Report 9538315 (Version 8)
Quarter: 2018Q3

REPORT INFORMATION
  Report Type: Report from Study
  Country: CA (occurrence: CA)
  Receive Date: 20130920
  Receipt Date: 20180917
  Transmission Date: 20181010
  Serious: Yes (Hospitalization, Other)
  Sender: FDA-Public Use
  Company Number: CA-ROCHE-1277397

PATIENT
  Age: 46 Year
  Sex: Female
  Weight: 52.6 kg

DRUGS (16)
  1. METHYLPREDNISOLONE. [Concomitant]
     Active Substance: METHYLPREDNISOLONE
     Indication: PREMEDICATION
     Route: 042
     Dates: start: 20130906
  2. ARANESP [Concomitant]
     Active Substance: DARBEPOETIN ALFA
  3. CELLCEPT [Concomitant]
     Active Substance: MYCOPHENOLATE MOFETIL\MYCOPHENOLATE MOFETIL HYDROCHLORIDE
  4. INFLIXIMAB [Suspect]
     Active Substance: INFLIXIMAB
     Indication: PRODUCT USED FOR UNKNOWN INDICATION
     Route: 065
  5. RAMIPRIL. [Concomitant]
     Active Substance: RAMIPRIL
  6. AZATHIOPRINE. [Concomitant]
     Active Substance: AZATHIOPRINE
  7. DIPHENHYDRAMINE HYDROCHLORIDE. [Concomitant]
     Active Substance: DIPHENHYDRAMINE HYDROCHLORIDE
     Indication: PREMEDICATION
     Route: 048
     Dates: start: 20130906
  8. PREDNISONE. [Concomitant]
     Active Substance: PREDNISONE
     Route: 065
  9. METOPROLOL. [Concomitant]
     Active Substance: METOPROLOL
  10. WARFARIN [Concomitant]
     Active Substance: WARFARIN
  11. SOLU?MEDROL [Concomitant]
     Active Substance: METHYLPREDNISOLONE SODIUM SUCCINATE
     Indication: PREMEDICATION
     Route: 042
     Dates: start: 20130906
  12. RITUXAN [Suspect]
     Active Substance: RITUXIMAB
     Indication: GRANULOMA
     Dosage: FREQUENCY: DAY 1, 15 , SUBSEQUENT DOSE : ON 03/NOV/2016. MOST RECENT DOSE: 02/NOV/2017
     Route: 042
     Dates: start: 201101
  13. RITUXAN [Suspect]
     Active Substance: RITUXIMAB
     Indication: RETROPERITONEAL FIBROSIS
  14. PROPANOLOL [Concomitant]
     Active Substance: PROPRANOLOL HYDROCHLORIDE
  15. ACETAMINOPHEN. [Concomitant]
     Active Substance: ACETAMINOPHEN
     Indication: PREMEDICATION
     Route: 048
     Dates: start: 20130906
  16. PANTOLOC [Concomitant]
     Active Substance: PANTOPRAZOLE SODIUM

REACTIONS (29)
  - Iliac artery occlusion [Unknown]
  - Drug effect decreased [Unknown]
  - Abdominal distension [Unknown]
  - Back pain [Unknown]
  - Dyspnoea [Unknown]
  - Vital functions abnormal [Not Recovered/Not Resolved]
  - Sepsis [Unknown]
  - Diarrhoea [Unknown]
  - Drug hypersensitivity [Unknown]
  - Blood pressure increased [Unknown]
  - Contusion [Unknown]
  - Renal artery stenosis [Unknown]
  - Inferior vena cava syndrome [Unknown]
  - Renal impairment [Not Recovered/Not Resolved]
  - Musculoskeletal stiffness [Unknown]
  - Deep vein thrombosis [Unknown]
  - Hepatomegaly [Unknown]
  - Oedema peripheral [Unknown]
  - Haematuria [Unknown]
  - Blood pressure increased [Unknown]
  - Splenic artery stenosis [Unknown]
  - Soft tissue disorder [Unknown]
  - Renal cyst [Unknown]
  - Renal scan abnormal [Unknown]
  - Aortic stenosis [Unknown]
  - Rheumatic disorder [Unknown]
  - Renal artery occlusion [Unknown]
  - Treatment failure [Unknown]
  - Abdominal pain [Not Recovered/Not Resolved]

NARRATIVE: CASE EVENT DATE: 20130911
